FAERS Safety Report 23934762 (Version 1)
Quarter: 2024Q2

REPORT INFORMATION
  Report Type: Other
  Country: SE (occurrence: SE)
  Receive Date: 20240604
  Receipt Date: 20240604
  Transmission Date: 20240716
  Serious: Yes (Hospitalization, Other)
  Sender: FDA-Public Use
  Company Number: SE-DENTSPLY-2024SCDP000169

PATIENT
  Age: 80 Year
  Sex: Male

DRUGS (10)
  1. XYLOCAINE [Suspect]
     Active Substance: LIDOCAINE HYDROCHLORIDE\LIDOCAINE HYDROCHLORIDE ANHYDROUS
     Indication: Local anaesthesia
     Dosage: 50 MG OF 10 MG/ML (5 ML) XYLOCAINE INJECTIONFLUID, SOLUTION/SOLUTION FOR INJECTION
     Route: 058
     Dates: start: 20240508, end: 20240508
  2. XYLOCAINE [Suspect]
     Active Substance: LIDOCAINE HYDROCHLORIDE\LIDOCAINE HYDROCHLORIDE ANHYDROUS
     Indication: Skin operation
  3. EPINEPHRINE BITARTRATE [Suspect]
     Active Substance: EPINEPHRINE BITARTRATE
     Indication: Skin operation
     Dosage: 0.1 MG/ML (0.25) ADRENALIN MARTINDALE PHARMA INJECTIONFLUID, SOLUTION/SOLUTION FOR INJECTION
     Route: 058
     Dates: start: 20240508, end: 20240508
  4. OMEPRAZOLE SODIUM [Concomitant]
     Active Substance: OMEPRAZOLE SODIUM
     Indication: Product used for unknown indication
     Dosage: 10 MILLIGRAM (1VB)
  5. CEFUROXIME [Concomitant]
     Active Substance: CEFUROXIME
     Indication: Product used for unknown indication
     Dosage: UNK DOSE OF 20 MG FURIX TABLET (1X1)
  6. FINASTERIDE [Concomitant]
     Active Substance: FINASTERIDE
     Indication: Product used for unknown indication
     Dosage: 5 MILLIGRAM (1X1)
     Route: 048
  7. CANDESARTAN [Concomitant]
     Active Substance: CANDESARTAN
     Indication: Product used for unknown indication
     Dosage: 32 MILLIGRAM (1X1)
     Route: 048
  8. ELIQUIS [Concomitant]
     Active Substance: APIXABAN
     Indication: Product used for unknown indication
     Dosage: 5 MILLIGRAM (1X2)
  9. ACETAMINOPHEN [Concomitant]
     Active Substance: ACETAMINOPHEN
     Indication: Product used for unknown indication
     Dosage: 1 GRAM (VB)
  10. COSOPT [Concomitant]
     Active Substance: DORZOLAMIDE HYDROCHLORIDE\TIMOLOL MALEATE
     Indication: Product used for unknown indication
     Dosage: UNK DOSE (1X2)

REACTIONS (2)
  - Hypokalaemia [Unknown]
  - Atrial flutter [None]

NARRATIVE: CASE EVENT DATE: 20240508
